FAERS Safety Report 7686055-X (Version None)
Quarter: 2011Q3

REPORT INFORMATION
  Report Type: 
  Country: None (occurrence: None)
  Receive Date: 20110816
  Receipt Date: 20110804
  Transmission Date: 20111222
  Serious: Yes (Hospitalization, Disabling, Other)
  Sender: FDA-Public Use
  Company Number: PHHY2011US15402

PATIENT
  Sex: Female
  Weight: 55.782 kg

DRUGS (13)
  1. EXJADE [Suspect]
     Indication: SICKLE CELL ANAEMIA
     Dosage: 1500 MG, DAILY
     Route: 048
     Dates: start: 20090923
  2. PENICILLIN [Concomitant]
  3. CANASA [Concomitant]
  4. DEPAKOTE [Concomitant]
  5. NORCO [Concomitant]
     Indication: PAIN
     Dosage: 5/325 MG, Q4 HRS PRN
     Route: 048
  6. FOLIC ACID [Concomitant]
  7. CORTEF [Concomitant]
  8. EXJADE [Suspect]
     Dosage: 1000 MG DAILY
     Route: 048
  9. MESALAMINE [Concomitant]
     Indication: COLITIS ULCERATIVE
     Dosage: 1000 MG, UNK
     Route: 054
  10. VERAPAMIL [Concomitant]
  11. PROPRANOLOL [Concomitant]
  12. ASPIRIN [Concomitant]
     Dosage: 81 MG, UNK
     Route: 048
  13. DILAUDID [Concomitant]
     Indication: PAIN
     Dosage: 8-12 MG, Q12HRS PRN
     Route: 048

REACTIONS (6)
  - ABDOMINAL PAIN UPPER [None]
  - NAUSEA [None]
  - MIGRAINE [None]
  - ADRENOCORTICAL INSUFFICIENCY ACUTE [None]
  - ADRENAL INSUFFICIENCY [None]
  - ABDOMINAL PAIN [None]
